FAERS Safety Report 8115151-8 (Version None)
Quarter: 2012Q1

REPORT INFORMATION
  Report Type: 
  Country: None (occurrence: None)
  Receive Date: 20120201
  Receipt Date: 20120120
  Transmission Date: 20120608
  Serious: Yes (Hospitalization)
  Sender: FDA-Public Use
  Company Number: NATX201100014

PATIENT
  Age: 64 Year
  Sex: Female
  Weight: 90.7 kg

DRUGS (14)
  1. VITAMIN D [Concomitant]
  2. BENICAR HCT [Concomitant]
  3. ASTEPRO (AZELASTINE HYDROCHLORIDE) [Concomitant]
  4. ASPIRIN LOW (ACETYLSALICYLIC ACID) [Concomitant]
  5. METOPROLOL TARTRATE [Concomitant]
  6. SIMVASTATIN [Concomitant]
  7. PREVACID [Concomitant]
  8. XOPENEX [Concomitant]
  9. ACIDOPHILUS (LACTOBACILLUS ACIDOPHILUS) [Concomitant]
  10. DENAVIR [Suspect]
     Indication: ORAL HERPES
     Dosage: PRN, TOPICAL
     Route: 061
     Dates: start: 19960101
  11. LOVAZA [Concomitant]
  12. MUCINEX [Concomitant]
  13. NORVASC [Concomitant]
  14. LISINOPRIL + HIDROCLOROTIAZIDA (HYDROCHLOROTHIAZIDE, LISINOPRIL) [Concomitant]

REACTIONS (16)
  - EXPIRED DRUG ADMINISTERED [None]
  - POST HERPETIC NEURALGIA [None]
  - SINUSITIS [None]
  - OEDEMA [None]
  - CORONARY ARTERY BYPASS [None]
  - MUSCULOSKELETAL PAIN [None]
  - NASOPHARYNGITIS [None]
  - HERPES ZOSTER [None]
  - CHEST PAIN [None]
  - BLOOD GLUCOSE ABNORMAL [None]
  - BRONCHITIS [None]
  - GASTROOESOPHAGEAL REFLUX DISEASE [None]
  - DERMATITIS CONTACT [None]
  - HYPOTHYROIDISM [None]
  - TREATMENT NONCOMPLIANCE [None]
  - ORAL HERPES [None]
